FAERS Safety Report 13342102 (Version 2)
Quarter: 2017Q1

REPORT INFORMATION
  Report Type: Spontaneous
  Country: US (occurrence: US)
  Receive Date: 20170316
  Receipt Date: 20170322
  Transmission Date: 20170428
  Serious: No
  Sender: FDA-Public Use
  Company Number: US-EMD SERONO-8147662

PATIENT
  Sex: Female

DRUGS (1)
  1. REBIF [Suspect]
     Active Substance: INTERFERON BETA-1A
     Indication: PRODUCT USED FOR UNKNOWN INDICATION
     Route: 058
     Dates: end: 201612

REACTIONS (5)
  - Memory impairment [Unknown]
  - Influenza like illness [Unknown]
  - Injection site pain [Unknown]
  - Skin lesion [Unknown]
  - Drug dose omission [Unknown]
